FAERS Safety Report 7545637-6 (Version None)
Quarter: 2011Q2

REPORT INFORMATION
  Report Type: 
  Country: None (occurrence: None)
  Receive Date: 20110614
  Receipt Date: 20110530
  Transmission Date: 20111010
  Serious: Yes (Other)
  Sender: FDA-Public Use
  Company Number: IN-RANBAXY-2011RR-45219

PATIENT
  Age: 27 Year
  Sex: Female

DRUGS (1)
  1. ONDANSETRON [Suspect]
     Indication: PROPHYLAXIS
     Dosage: 4 MG, UNK
     Route: 042

REACTIONS (2)
  - BRADYCARDIA [None]
  - HYPOTENSION [None]
